FAERS Safety Report 23013936 (Version 1)
Quarter: 2023Q4

REPORT INFORMATION
  Report Type: Spontaneous
  Country: US (occurrence: US)
  Receive Date: 20231001
  Receipt Date: 20231001
  Transmission Date: 20240110
  Serious: No
  Sender: FDA-Public Use
  Company Number: US-drreddys-SPO/USA/23/0175278

PATIENT
  Age: 47 Year
  Sex: Female

DRUGS (1)
  1. ZENATANE [Suspect]
     Active Substance: ISOTRETINOIN
     Indication: Product used for unknown indication
     Dosage: RMA ISSUE DATE: 07 FEBRUARY 2023 08:05:03 AM, 07 MARCH 2023 04:06:44 PM, 12 APRIL 2023 09:48:31 AM,

REACTIONS (1)
  - Drug intolerance [Unknown]
